FAERS Safety Report 5802437-2 (Version None)
Quarter: 2008Q3

REPORT INFORMATION
  Report Type: 
  Country: None (occurrence: None)
  Receive Date: 20080708
  Receipt Date: 20080605
  Transmission Date: 20090109
  Serious: No
  Sender: FDA-Public Use
  Company Number: US-BAYER-200817472NA

PATIENT
  Sex: Male

DRUGS (4)
  1. AVELOX [Suspect]
     Indication: UPPER RESPIRATORY TRACT INFECTION
     Dosage: TOTAL DAILY DOSE: 400 MG  UNIT DOSE: 400 MG
     Route: 048
     Dates: start: 20080229, end: 20080229
  2. AVALIDE [Concomitant]
     Dates: start: 20030101
  3. PLAVIX [Concomitant]
     Dates: start: 20030101
  4. NORVASC [Concomitant]
     Dates: start: 20030101

REACTIONS (1)
  - ADVERSE DRUG REACTION [None]
